FAERS Safety Report 5584256-8 (Version None)
Quarter: 2008Q1

REPORT INFORMATION
  Report Type: 
  Country: None (occurrence: None)
  Receive Date: 20080108
  Receipt Date: 20080103
  Transmission Date: 20080703
  Serious: Yes (Other)
  Sender: FDA-Public Use
  Company Number: B0360361A

PATIENT
  Age: 35 Year
  Sex: Female

DRUGS (1)
  1. PAROXETINE HCL [Suspect]
     Indication: ANXIETY
     Route: 065
     Dates: start: 19990302

REACTIONS (12)
  - AGITATION [None]
  - DISTURBANCE IN ATTENTION [None]
  - DIZZINESS [None]
  - HEADACHE [None]
  - INFLUENZA [None]
  - IRRITABILITY [None]
  - MOOD SWINGS [None]
  - NAUSEA [None]
  - PREMENSTRUAL SYNDROME [None]
  - SUICIDAL IDEATION [None]
  - TEARFULNESS [None]
  - WITHDRAWAL SYNDROME [None]
